FAERS Safety Report 17973951 (Version 1)
Quarter: 2020Q3

REPORT INFORMATION
  Report Type: Spontaneous
  Country: US (occurrence: US)
  Receive Date: 20200702
  Receipt Date: 20200702
  Transmission Date: 20201103
  Serious: Yes (Death)
  Sender: FDA-Public Use
  Company Number: None

PATIENT
  Age: 73 Year
  Sex: Male
  Weight: 62.1 kg

DRUGS (9)
  1. REMDESIVIR. [Suspect]
     Active Substance: REMDESIVIR
     Indication: SARS-COV-2 TEST
     Route: 041
     Dates: start: 20200623, end: 20200625
  2. PANTOPRAZOLE [Concomitant]
     Active Substance: PANTOPRAZOLE
     Dates: start: 20200623, end: 20200625
  3. PROPOFOL. [Concomitant]
     Active Substance: PROPOFOL
     Dates: start: 20200623, end: 20200625
  4. INSULIN [Concomitant]
     Active Substance: INSULIN NOS
     Dates: start: 20200623, end: 20200625
  5. DEXAMETHASONE. [Concomitant]
     Active Substance: DEXAMETHASONE
     Dates: start: 20200624, end: 20200625
  6. VALPROIC ACID. [Concomitant]
     Active Substance: VALPROIC ACID
     Dates: start: 20200623, end: 20200625
  7. PIPERACELLI/TAZOBACTAM [Concomitant]
     Dates: start: 20200623, end: 20200625
  8. HEPARIN [Concomitant]
     Active Substance: HEPARIN SODIUM
     Dates: start: 20200623, end: 20200625
  9. LEVETIRACETAM. [Concomitant]
     Active Substance: LEVETIRACETAM
     Dates: start: 20200623, end: 20200625

REACTIONS (1)
  - Death [None]

NARRATIVE: CASE EVENT DATE: 20200625
